FAERS Safety Report 15965535 (Version 1)
Quarter: 2019Q1

REPORT INFORMATION
  Report Type: Spontaneous
  Country: US (occurrence: US)
  Receive Date: 20190215
  Receipt Date: 20190215
  Transmission Date: 20190418
  Serious: No
  Sender: FDA-Public Use
  Company Number: US-HORIZON-KRY-0067-2019

PATIENT
  Age: 50 Year
  Sex: Male

DRUGS (9)
  1. LOSARTAN. [Concomitant]
     Active Substance: LOSARTAN
  2. AMLODIPINE [Concomitant]
     Active Substance: AMLODIPINE BESYLATE
  3. COLCHICINE. [Concomitant]
     Active Substance: COLCHICINE
  4. INDOCIN [Concomitant]
     Active Substance: INDOMETHACIN
  5. KRYSTEXXA [Suspect]
     Active Substance: PEGLOTICASE
     Indication: GOUT
     Dosage: 8 MG/ML INFUSION
     Dates: start: 20181123, end: 20190125
  6. METFORMIN [Concomitant]
     Active Substance: METFORMIN HYDROCHLORIDE
  7. METOPROLOL. [Concomitant]
     Active Substance: METOPROLOL
  8. TRAMADOL. [Concomitant]
     Active Substance: TRAMADOL
  9. PREDNISONE. [Concomitant]
     Active Substance: PREDNISONE

REACTIONS (1)
  - Therapeutic response decreased [Recovered/Resolved]
